FAERS Safety Report 17872492 (Version 14)
Quarter: 2021Q2

REPORT INFORMATION
  Report Type: Report from Study
  Country: CN (occurrence: CN)
  Receive Date: 20200608
  Receipt Date: 20210624
  Transmission Date: 20210717
  Serious: Yes (Life-Threatening, Hospitalization)
  Sender: FDA-Public Use
  Company Number: CN-ROCHE-2615149

PATIENT
  Age: 67 Year
  Sex: Male
  Weight: 71 kg

DRUGS (98)
  1. RITUXIMAB. [Suspect]
     Active Substance: RITUXIMAB
     Indication: DIFFUSE LARGE B-CELL LYMPHOMA
     Dosage: ON 22/MAY/2020, MOST RECENT DOSE OF DOXORUBICIN (690 MG) PRIOR TO SERIOUS ADVERSE EVENT ONSET. 375 M
     Route: 042
     Dates: start: 20200522
  2. PARACETAMOL [Concomitant]
     Active Substance: ACETAMINOPHEN
  3. SODIUM BICARBONATE. [Concomitant]
     Active Substance: SODIUM BICARBONATE
     Route: 042
     Dates: start: 20200914, end: 20200915
  4. SODIUM BICARBONATE. [Concomitant]
     Active Substance: SODIUM BICARBONATE
     Route: 042
     Dates: start: 20201008, end: 20201008
  5. DIPHENHYDRAMINE. [Concomitant]
     Active Substance: DIPHENHYDRAMINE
     Route: 030
     Dates: start: 20200914, end: 20200914
  6. DIPHENHYDRAMINE. [Concomitant]
     Active Substance: DIPHENHYDRAMINE
     Route: 030
     Dates: start: 20201119, end: 20201119
  7. ACETAMINOPHEN. [Concomitant]
     Active Substance: ACETAMINOPHEN
     Route: 048
     Dates: start: 20200522, end: 20200522
  8. FUROSEMIDE. [Concomitant]
     Active Substance: FUROSEMIDE
     Indication: HYPOTENSION
     Route: 042
     Dates: start: 20200522, end: 20200522
  9. NIFEDIPINE. [Concomitant]
     Active Substance: NIFEDIPINE
     Route: 060
     Dates: start: 20200522, end: 20200522
  10. POLYENE PHOSPHATIDYLCHOLINE [Concomitant]
     Active Substance: PHOSPHOLIPID
     Route: 048
     Dates: start: 20200518, end: 20200610
  11. GLOBULIN [Concomitant]
     Dates: start: 20200602
  12. METHYLPREDNISOLONE. [Concomitant]
     Active Substance: METHYLPREDNISOLONE
     Route: 042
     Dates: start: 20201029, end: 20201029
  13. SODIUM BICARBONATE. [Concomitant]
     Active Substance: SODIUM BICARBONATE
     Route: 042
     Dates: start: 20200731, end: 20200802
  14. TROPISETRON [Concomitant]
     Active Substance: TROPISETRON
     Route: 042
     Dates: start: 20200522, end: 20200525
  15. TROPISETRON [Concomitant]
     Active Substance: TROPISETRON
     Route: 042
     Dates: start: 20200914, end: 20200914
  16. OMEPRAZOLE. [Concomitant]
     Active Substance: OMEPRAZOLE
     Route: 042
     Dates: start: 20200710, end: 20200713
  17. DIPHENHYDRAMINE. [Concomitant]
     Active Substance: DIPHENHYDRAMINE
     Route: 030
     Dates: start: 20201008, end: 20201008
  18. ACETAMINOPHEN. [Concomitant]
     Active Substance: ACETAMINOPHEN
     Route: 048
     Dates: start: 20200710, end: 20200710
  19. FUROSEMIDE. [Concomitant]
     Active Substance: FUROSEMIDE
     Route: 042
     Dates: start: 20200914, end: 20200914
  20. CONCENTRATED SODIUM CHLORIDE [Concomitant]
     Active Substance: SODIUM CHLORIDE
     Route: 048
     Dates: start: 20200611, end: 20200611
  21. METHYLCOBALAMIN. [Concomitant]
     Active Substance: METHYLCOBALAMIN
     Indication: VITAMIN SUPPLEMENTATION
     Route: 048
     Dates: start: 20200612, end: 20200612
  22. MOXIFLOXACIN. [Concomitant]
     Active Substance: MOXIFLOXACIN
     Route: 042
  23. LIDOCAINE. [Concomitant]
     Active Substance: LIDOCAINE
     Route: 061
     Dates: start: 20200731, end: 20200731
  24. HUMAN ALBUMIN [Concomitant]
     Active Substance: ALBUMIN HUMAN
     Route: 042
     Dates: start: 20200604, end: 20200605
  25. COMPOUND PARACETAMOL [Concomitant]
     Indication: PAIN
     Route: 048
     Dates: start: 20200604, end: 20200604
  26. PARK SLEEP CAPSULE [Concomitant]
     Route: 048
     Dates: start: 20200625, end: 20200625
  27. SODIUM BICARBONATE. [Concomitant]
     Active Substance: SODIUM BICARBONATE
     Route: 042
     Dates: start: 20200522, end: 20200524
  28. DIPHENHYDRAMINE. [Concomitant]
     Active Substance: DIPHENHYDRAMINE
     Route: 030
     Dates: start: 20200731, end: 20200731
  29. ACETAMINOPHEN. [Concomitant]
     Active Substance: ACETAMINOPHEN
     Route: 048
     Dates: start: 20200914, end: 20200914
  30. ACETAMINOPHEN. [Concomitant]
     Active Substance: ACETAMINOPHEN
     Route: 048
     Dates: start: 20201029, end: 20201029
  31. MORPHINE [Concomitant]
     Active Substance: MORPHINE
     Route: 058
     Dates: start: 20200522, end: 20200522
  32. TAMIFLU [Concomitant]
     Active Substance: OSELTAMIVIR PHOSPHATE
     Route: 048
  33. LIDOCAINE. [Concomitant]
     Active Substance: LIDOCAINE
     Route: 061
     Dates: start: 20200914, end: 20200914
  34. GAMMA GLOBULIN [Concomitant]
     Active Substance: IMMUNE GLOBULIN NOS
     Route: 042
     Dates: start: 20200604, end: 20200607
  35. CEFAMANDOLE NAFATE [Concomitant]
     Active Substance: CEFAMANDOLE NAFATE
     Route: 042
     Dates: start: 20200702, end: 20200703
  36. HYDROXYETHYL STARCH 40 SODIUM CHLORIDE [Concomitant]
     Route: 042
     Dates: start: 20200602, end: 20200603
  37. SODIUM BICARBONATE. [Concomitant]
     Active Substance: SODIUM BICARBONATE
     Route: 042
     Dates: start: 20200523, end: 20200524
  38. TROPISETRON [Concomitant]
     Active Substance: TROPISETRON
     Route: 042
     Dates: start: 20200731, end: 20200802
  39. OMEPRAZOLE. [Concomitant]
     Active Substance: OMEPRAZOLE
     Route: 042
     Dates: start: 20200731, end: 20200802
  40. OMEPRAZOLE. [Concomitant]
     Active Substance: OMEPRAZOLE
     Route: 042
     Dates: start: 20201009, end: 20201009
  41. ENTECAVIR. [Concomitant]
     Active Substance: ENTECAVIR
     Indication: HEPATITIS B
     Route: 048
     Dates: start: 20200523, end: 20200525
  42. ENTECAVIR. [Concomitant]
     Active Substance: ENTECAVIR
     Route: 048
     Dates: start: 20200603, end: 20200611
  43. FUROSEMIDE. [Concomitant]
     Active Substance: FUROSEMIDE
     Indication: POLYURIA
     Route: 042
     Dates: start: 20200710, end: 20200710
  44. PROFENIN [Concomitant]
     Indication: PAIN
     Route: 048
     Dates: start: 202003, end: 202005
  45. VORICONAZOLE. [Concomitant]
     Active Substance: VORICONAZOLE
     Route: 048
     Dates: start: 20200604, end: 20200611
  46. FERROUS SUCCINATE [Concomitant]
     Active Substance: FERROUS SUCCINATE
     Indication: ANAEMIA
     Route: 048
     Dates: start: 202009, end: 202012
  47. HEPAROLYSATE [Concomitant]
     Active Substance: MAMMAL LIVER
     Route: 042
     Dates: start: 20200602, end: 20200611
  48. DOXOFYLLINE [Concomitant]
     Active Substance: DOXOFYLLINE
     Indication: COUGH
     Route: 042
     Dates: start: 20200604, end: 20200611
  49. ETIMICIN SULFATE [Concomitant]
     Active Substance: ETIMICIN SULFATE
     Route: 042
     Dates: start: 20200620, end: 20200706
  50. URSODEOXYCHOLIC ACID [Concomitant]
     Active Substance: URSODIOL
     Route: 048
     Dates: start: 20200621, end: 20200706
  51. CEFONICID SODIUM. [Concomitant]
     Active Substance: CEFONICID SODIUM
     Route: 042
     Dates: start: 20200702, end: 20200702
  52. PIPERACILLIN SODIUM;TAZOBACTAM SODIUM [Concomitant]
     Active Substance: PIPERACILLIN SODIUM\TAZOBACTAM SODIUM
     Route: 042
     Dates: start: 20200602, end: 20200608
  53. DIPHENHYDRAMINE. [Concomitant]
     Active Substance: DIPHENHYDRAMINE
     Route: 030
     Dates: start: 20200710, end: 20200710
  54. DIPHENHYDRAMINE. [Concomitant]
     Active Substance: DIPHENHYDRAMINE
     Route: 030
     Dates: start: 20200821, end: 20200821
  55. ACETAMINOPHEN. [Concomitant]
     Active Substance: ACETAMINOPHEN
     Route: 048
     Dates: start: 20201008, end: 20201008
  56. FUROSEMIDE. [Concomitant]
     Active Substance: FUROSEMIDE
     Route: 042
     Dates: start: 20200731, end: 20200731
  57. FUROSEMIDE. [Concomitant]
     Active Substance: FUROSEMIDE
     Route: 042
     Dates: start: 20200821, end: 20200821
  58. GABAPENTIN. [Concomitant]
     Active Substance: GABAPENTIN
     Route: 048
     Dates: start: 20200602, end: 20200724
  59. METHYLPREDNISOLONE. [Concomitant]
     Active Substance: METHYLPREDNISOLONE
     Route: 042
     Dates: start: 20201119, end: 20201119
  60. PREDNISONE. [Suspect]
     Active Substance: PREDNISONE
     Indication: DIFFUSE LARGE B-CELL LYMPHOMA
     Dosage: MOST RECENT DOSE OF 100 MG PREDNISONE: 26/MAY/2020
     Route: 042
     Dates: start: 20200522
  61. CEFACLOR. [Concomitant]
     Active Substance: CEFACLOR
  62. TROPISETRON [Concomitant]
     Active Substance: TROPISETRON
     Route: 042
     Dates: start: 20200710, end: 20200713
  63. ENTECAVIR. [Concomitant]
     Active Substance: ENTECAVIR
     Route: 048
     Dates: start: 20200710
  64. DIPHENHYDRAMINE. [Concomitant]
     Active Substance: DIPHENHYDRAMINE
     Route: 030
     Dates: start: 20201029, end: 20201029
  65. ACETAMINOPHEN. [Concomitant]
     Active Substance: ACETAMINOPHEN
     Route: 048
     Dates: start: 20200821, end: 20200821
  66. GABAPENTIN. [Concomitant]
     Active Substance: GABAPENTIN
     Indication: PAIN
     Route: 048
     Dates: start: 20200518, end: 20200602
  67. BICYCLOL [Concomitant]
     Active Substance: BICYCLOL
     Route: 048
     Dates: start: 20200603, end: 20200607
  68. LIDOCAINE. [Concomitant]
     Active Substance: LIDOCAINE
     Route: 061
     Dates: start: 20200821, end: 20200821
  69. AMBROXOL HYDROCHLORIDE [Concomitant]
     Active Substance: AMBROXOL HYDROCHLORIDE
     Route: 042
     Dates: start: 20200604, end: 20200611
  70. COMPOUND DANSHEN DRIPPING PILLS [Concomitant]
     Indication: CHEST DISCOMFORT
     Dosage: 10 GRAIN
     Route: 048
     Dates: start: 20200603, end: 20200603
  71. POLATUZUMAB VEDOTIN. [Suspect]
     Active Substance: POLATUZUMAB VEDOTIN
     Indication: DIFFUSE LARGE B-CELL LYMPHOMA
     Dosage: DATE OF MOST RECENT DOSE OF POLATUZUMAB VEDOTIN (127.8 MG) PRIOR TO SAE ONSET: 22/MAY/2020
     Route: 042
     Dates: start: 20200522
  72. PLACEBO [Suspect]
     Active Substance: UNSPECIFIED INGREDIENT
     Indication: DIFFUSE LARGE B-CELL LYMPHOMA
     Dosage: DATE MOST RECENT DOSE OF BLINDED VINCRISTINE PRIOR TO SAE ONSET: 22/MAY/2020
     Route: 042
     Dates: start: 20200522
  73. CYCLOPHOSPHAMIDE. [Suspect]
     Active Substance: CYCLOPHOSPHAMIDE
     Indication: DIFFUSE LARGE B-CELL LYMPHOMA
     Dosage: DATE OF MOST RECENT DOSE OF 1380 MG CYCLOPHOSPHAMIDE PRIOR TO SAE ONSET: 22/MAY/2020  750  MG/M2
     Route: 042
     Dates: start: 20200522
  74. SODIUM BICARBONATE. [Concomitant]
     Active Substance: SODIUM BICARBONATE
     Route: 042
     Dates: start: 20200710, end: 20200712
  75. TROPISETRON [Concomitant]
     Active Substance: TROPISETRON
     Route: 042
     Dates: start: 20200821, end: 20200824
  76. SODIUM LACTATE RINGER^S [Concomitant]
     Route: 042
     Dates: start: 20200711, end: 20200712
  77. ENTECAVIR. [Concomitant]
     Active Substance: ENTECAVIR
     Route: 048
     Dates: start: 20200526, end: 20200609
  78. ACETAMINOPHEN. [Concomitant]
     Active Substance: ACETAMINOPHEN
     Route: 048
     Dates: start: 20201119, end: 20201119
  79. FUROSEMIDE. [Concomitant]
     Active Substance: FUROSEMIDE
     Route: 042
     Dates: start: 20200603, end: 20200603
  80. PROFENIN [Concomitant]
     Route: 048
     Dates: start: 202005, end: 202012
  81. OSELTAMIVIR PHOSPHATE. [Concomitant]
     Active Substance: OSELTAMIVIR PHOSPHATE
     Route: 048
     Dates: start: 20200603, end: 20200610
  82. MOXIFLOXACIN HYDROCHLORIDE. [Concomitant]
     Active Substance: MOXIFLOXACIN HYDROCHLORIDE
     Route: 042
     Dates: start: 20200602, end: 20200611
  83. POTASSIUM CHLORIDE. [Concomitant]
     Active Substance: POTASSIUM CHLORIDE
     Route: 048
     Dates: start: 20200607, end: 20200609
  84. CEFONICID SODIUM. [Concomitant]
     Active Substance: CEFONICID SODIUM
     Route: 042
     Dates: start: 20200629, end: 20200629
  85. COMPOUND AMINOPHENAZONE AND BARBITAL [Concomitant]
     Indication: PYREXIA
     Route: 030
     Dates: start: 20200606, end: 20200606
  86. DOXORUBICIN [Suspect]
     Active Substance: DOXORUBICIN
     Indication: DIFFUSE LARGE B-CELL LYMPHOMA
     Dosage: MOST RECENT DOSE OF 92 MG DOXORUBICIN PRIOR TO SAE ONSET: 22/MAY/2020  50 MG/M2
     Route: 042
     Dates: start: 20200522
  87. SODIUM BICARBONATE. [Concomitant]
     Active Substance: SODIUM BICARBONATE
     Route: 042
     Dates: start: 20200821, end: 20200824
  88. TROPISETRON [Concomitant]
     Active Substance: TROPISETRON
     Route: 042
     Dates: start: 20201009, end: 20201009
  89. OMEPRAZOLE. [Concomitant]
     Active Substance: OMEPRAZOLE
     Route: 042
     Dates: start: 20200522, end: 20200525
  90. OMEPRAZOLE. [Concomitant]
     Active Substance: OMEPRAZOLE
     Route: 042
     Dates: start: 20200821, end: 20200824
  91. OMEPRAZOLE. [Concomitant]
     Active Substance: OMEPRAZOLE
     Route: 042
     Dates: start: 20200914, end: 20200914
  92. SODIUM LACTATE RINGER^S [Concomitant]
     Route: 042
     Dates: start: 20200523, end: 20200524
  93. DIPHENHYDRAMINE. [Concomitant]
     Active Substance: DIPHENHYDRAMINE
     Route: 030
     Dates: start: 20200522, end: 20200522
  94. ACETAMINOPHEN. [Concomitant]
     Active Substance: ACETAMINOPHEN
     Route: 048
     Dates: start: 20200731, end: 20200731
  95. FEBUXOSTAT. [Concomitant]
     Active Substance: FEBUXOSTAT
     Route: 048
     Dates: start: 20200522, end: 20200529
  96. PIPERACILLIN SODIUM [Concomitant]
     Active Substance: PIPERACILLIN SODIUM
  97. CEFAMANDOLE NAFATE [Concomitant]
     Active Substance: CEFAMANDOLE NAFATE
     Route: 042
     Dates: start: 20200624, end: 20200627
  98. COMPOUND PARACETAMOL [Concomitant]
     Dosage: 1 OTHER
     Route: 048
     Dates: start: 20200606, end: 20200606

REACTIONS (4)
  - Hypotension [Recovered/Resolved]
  - Pneumonia [Recovering/Resolving]
  - Platelet count decreased [Recovered/Resolved]
  - Lymphocyte count decreased [Recovered/Resolved]

NARRATIVE: CASE EVENT DATE: 20200602
